FAERS Safety Report 7579611-0 (Version None)
Quarter: 2011Q2

REPORT INFORMATION
  Report Type: 
  Country: None (occurrence: None)
  Receive Date: 20110629
  Receipt Date: 20110614
  Transmission Date: 20111010
  Serious: Yes (Other)
  Sender: FDA-Public Use
  Company Number: US-BAYER-2011-042370

PATIENT
  Age: 20 Year
  Sex: Female

DRUGS (1)
  1. MIRENA [Suspect]
     Indication: CONTRACEPTION
     Dosage: 20 ?G, UNK
     Route: 015
     Dates: start: 20110426, end: 20110517

REACTIONS (11)
  - ABDOMINAL PAIN [None]
  - GAIT DISTURBANCE [None]
  - NAUSEA [None]
  - DEVICE EXPULSION [None]
  - PAIN IN EXTREMITY [None]
  - BACK PAIN [None]
  - PELVIC PAIN [None]
  - ABASIA [None]
  - ENDOMETRITIS [None]
  - DISCOMFORT [None]
  - INFECTION [None]
